FAERS Safety Report 4807881-8 (Version None)
Quarter: 2005Q4

REPORT INFORMATION
  Report Type: 
  Country: None (occurrence: None)
  Receive Date: 20051020
  Receipt Date: 20051006
  Transmission Date: 20060501
  Serious: Yes (Hospitalization)
  Sender: FDA-Public Use
  Company Number: ENTC2005-0297

PATIENT
  Age: 1 Day
  Sex: Female

DRUGS (1)
  1. STALEVO 100 [Suspect]
     Dosage: TRANSPLACENTAL; FROM GESTATIONAL  WEEK 12
     Route: 064

REACTIONS (7)
  - CONVULSION NEONATAL [None]
  - DRUG EXPOSURE DURING PREGNANCY [None]
  - DRUG INEFFECTIVE [None]
  - MENINGITIS NEONATAL [None]
  - MUSCLE SPASMS [None]
  - NEONATAL DISORDER [None]
  - NEONATAL PNEUMONIA [None]
